FAERS Safety Report 11230765 (Version 1)
Quarter: 2015Q3

REPORT INFORMATION
  Report Type: Spontaneous
  Country: GB (occurrence: GB)
  Receive Date: 20150701
  Receipt Date: 20150701
  Transmission Date: 20151125
  Serious: Yes (Hospitalization)
  Sender: FDA-Public Use
  Company Number: GB-SUN PHARMACEUTICAL INDUSTRIES LTD-2015RR-099613

PATIENT

DRUGS (29)
  1. SENNA [Concomitant]
     Active Substance: SENNA LEAF\SENNOSIDES\SENNOSIDES A AND B
     Indication: PRODUCT USED FOR UNKNOWN INDICATION
     Dosage: 1 OR 2 AT NIGHT WHEN REQUIRED.
     Route: 065
     Dates: start: 20140813
  2. TIOTROPIUM BROMIDE [Concomitant]
     Active Substance: TIOTROPIUM BROMIDE
     Indication: ASTHMA
     Dosage: 18 ?G, QD
     Route: 055
     Dates: start: 20140813
  3. MACROGOL [Concomitant]
     Active Substance: POLYETHYLENE GLYCOLS
     Indication: PRODUCT USED FOR UNKNOWN INDICATION
     Dosage: 1 DF, BID
     Route: 065
     Dates: start: 20140115
  4. VENTOLIN [Concomitant]
     Active Substance: ALBUTEROL SULFATE
     Indication: ASTHMA
     Dosage: 2 DF, WHEN REQUIRED
     Route: 055
     Dates: start: 20140813
  5. SYMBICORT [Concomitant]
     Active Substance: BUDESONIDE\FORMOTEROL FUMARATE DIHYDRATE
     Indication: ASTHMA
     Dosage: 4 DF, BID
     Route: 065
     Dates: start: 20140813
  6. PARACETAMOL [Concomitant]
     Active Substance: ACETAMINOPHEN
     Indication: PAIN
     Dosage: TAKE ONE OR TWO TABLETS FOUR TIMES A DAY (NOT EVERYDAY) WHEN REQUIRED
     Route: 065
     Dates: start: 20140813
  7. ESOMEPRAZOLE [Concomitant]
     Active Substance: ESOMEPRAZOLE
     Indication: PRODUCT USED FOR UNKNOWN INDICATION
     Dosage: 40 MG, QD
     Route: 065
     Dates: start: 20140813
  8. CLARITHROMYCIN. [Suspect]
     Active Substance: CLARITHROMYCIN
     Indication: ASTHMA
     Dosage: 250 MG, DAILY
     Route: 048
     Dates: start: 20150416
  9. SERTRALINE [Concomitant]
     Active Substance: SERTRALINE HYDROCHLORIDE
     Indication: DEPRESSION
     Dosage: 50 MG, QD
     Route: 065
     Dates: start: 20140813
  10. HYDROXYCHLOROQUINE [Concomitant]
     Active Substance: HYDROXYCHLOROQUINE
     Indication: ARTHRITIS
     Dosage: 200 MG, BID
     Route: 065
     Dates: start: 20140813
  11. HYPROMELLOSE [Concomitant]
     Active Substance: HYPROMELLOSES
     Indication: DRY EYE
     Dosage: 1 GTT, AS NEEDED TO EACH EYE
     Route: 065
     Dates: start: 20140813
  12. ALENDRONIC ACID [Concomitant]
     Active Substance: ALENDRONIC ACID
     Indication: PRODUCT USED FOR UNKNOWN INDICATION
     Dosage: 70 MG, 1/WEEK
     Route: 065
     Dates: start: 20150528
  13. HYDROXOCOBALAMIN [Concomitant]
     Active Substance: HYDROXOCOBALAMIN
     Indication: PRODUCT USED FOR UNKNOWN INDICATION
     Dosage: 1MG, 1X12/WEEKS
     Route: 065
     Dates: start: 20140813
  14. ONDANSETRON [Concomitant]
     Active Substance: ONDANSETRON
     Indication: PRODUCT USED FOR UNKNOWN INDICATION
     Dosage: 4 MG, TID
     Route: 065
     Dates: start: 20140818
  15. SODIUM CHLORIDE. [Concomitant]
     Active Substance: SODIUM CHLORIDE
     Indication: PRODUCT USED FOR UNKNOWN INDICATION
     Dosage: 2 DF, BID
     Route: 055
     Dates: start: 20140813
  16. FOLIC ACID. [Concomitant]
     Active Substance: FOLIC ACID
     Indication: PRODUCT USED FOR UNKNOWN INDICATION
     Dosage: 5 MG, QD
     Route: 065
     Dates: start: 20140813
  17. CLARITHROMYCIN. [Suspect]
     Active Substance: CLARITHROMYCIN
     Indication: ASTHMA
     Dosage: 500 MG, QD
     Route: 048
     Dates: start: 201410, end: 20150416
  18. ADCAL-D3 [Concomitant]
     Active Substance: CALCIUM CARBONATE\CHOLECALCIFEROL
     Indication: PRODUCT USED FOR UNKNOWN INDICATION
     Dosage: 2 DF, QD
     Route: 065
     Dates: start: 20150528
  19. SANDO-K [Concomitant]
     Active Substance: POTASSIUM BICARBONATE\POTASSIUM CHLORIDE
     Indication: PRODUCT USED FOR UNKNOWN INDICATION
     Dosage: 1 DF, BID
     Route: 065
     Dates: start: 20150528
  20. LORATADINE. [Concomitant]
     Active Substance: LORATADINE
     Indication: SEASONAL ALLERGY
     Dosage: 10 MG, WHEN REQUIRED
     Route: 065
     Dates: start: 20140813
  21. PREDNISOLONE. [Suspect]
     Active Substance: PREDNISOLONE
     Indication: ASTHMA
     Dosage: 9 MG, ORIGINAL DOSE PRESCRIBED WAS REDUCED
     Route: 065
     Dates: start: 201410
  22. NAVISPARE [Concomitant]
     Indication: HYPERALDOSTERONISM
     Dosage: 1 DF, QD
     Route: 065
     Dates: start: 20140813
  23. BECONASE AQ [Concomitant]
     Active Substance: BECLOMETHASONE DIPROPIONATE MONOHYDRATE
     Indication: SEASONAL ALLERGY
     Dosage: 2 DF, BID, TO EACH NOSTRIL
     Route: 065
     Dates: start: 20140813
  24. VENTOLIN [Concomitant]
     Active Substance: ALBUTEROL SULFATE
     Indication: ASTHMA
     Dosage: INHALE 1 DOSE 3-4 TIMES A DAY AS REQURIED
     Route: 065
     Dates: start: 20140813
  25. PREMARIN [Concomitant]
     Active Substance: ESTROGENS, CONJUGATED
     Indication: HORMONE REPLACEMENT THERAPY
     Dosage: 0.625 MG, QD
     Route: 065
     Dates: start: 20140813
  26. MEPTAZINOL [Concomitant]
     Indication: PRODUCT USED FOR UNKNOWN INDICATION
     Dosage: 200 MG, QID
     Route: 065
     Dates: start: 20150528
  27. ARTIFICIAL SALIVA [Concomitant]
     Indication: DRY MOUTH
     Dosage: USE AS DIRECTED.
     Route: 065
     Dates: start: 20140813
  28. ASPIRIN. [Concomitant]
     Active Substance: ASPIRIN
     Indication: PRODUCT USED FOR UNKNOWN INDICATION
     Dosage: 75 MG, QD
     Route: 065
     Dates: start: 20150528
  29. TOPIRAMATE. [Concomitant]
     Active Substance: TOPIRAMATE
     Indication: PRODUCT USED FOR UNKNOWN INDICATION
     Dosage: 25 MG, BID
     Route: 065
     Dates: start: 20150528

REACTIONS (12)
  - Swelling face [Recovered/Resolved]
  - Headache [Not Recovered/Not Resolved]
  - Skin hypertrophy [Recovered/Resolved]
  - Asthenia [Recovered/Resolved]
  - Diplopia [Not Recovered/Not Resolved]
  - Eye swelling [Recovered/Resolved]
  - Abdominal distension [Recovered/Resolved]
  - Acidosis [Recovered/Resolved]
  - Temporal arteritis [Unknown]
  - Transient ischaemic attack [Unknown]
  - Drug interaction [Unknown]
  - Status asthmaticus [Unknown]
